FAERS Safety Report 5937149-8 (Version None)
Quarter: 2008Q4

REPORT INFORMATION
  Report Type: 
  Country: None (occurrence: None)
  Receive Date: 20081031
  Receipt Date: 20081027
  Transmission Date: 20090506
  Serious: Yes (Other)
  Sender: FDA-Public Use
  Company Number: US-BRISTOL-MYERS SQUIBB COMPANY-14387120

PATIENT
  Sex: Male

DRUGS (8)
  1. EFAVIRENZ [Suspect]
  2. ATAZANAVIR SULFATE [Suspect]
  3. LAMIVUDINE [Suspect]
  4. ABACAVIR [Suspect]
  5. TENOFOVIR [Suspect]
  6. LOPINAVIR AND RITONAVIR [Suspect]
  7. RITONAVIR [Suspect]
  8. ENFUVIRTIDE [Suspect]

REACTIONS (1)
  - BLOOD HIV RNA INCREASED [None]
